FAERS Safety Report 4471331-4 (Version None)
Quarter: 2004Q4

REPORT INFORMATION
  Report Type: 
  Country: None (occurrence: None)
  Receive Date: 20041006
  Receipt Date: 20040913
  Transmission Date: 20050328
  Serious: Yes (Other)
  Sender: FDA-Public Use
  Company Number: M2004-1416

PATIENT
  Sex: Female

DRUGS (2)
  1. DIAZEPAM [Suspect]
     Indication: MUSCULOSKELETAL STIFFNESS
     Dosage: TRANS-PLACENTAL
     Route: 064
  2. BACLOFEN [Suspect]

REACTIONS (4)
  - COMPLICATION OF DELIVERY [None]
  - DRUG EXPOSURE DURING PREGNANCY [None]
  - FOETAL DISTRESS SYNDROME [None]
  - PREGNANCY [None]
